FAERS Safety Report 9260590 (Version 2)
Quarter: 2013Q3

REPORT INFORMATION
  Report Type: Spontaneous
  Country: JP (occurrence: JP)
  Receive Date: 20130429
  Receipt Date: 20130806
  Transmission Date: 20140515
  Serious: Yes (Other)
  Sender: FDA-Public Use
  Company Number: JP-SANOFI-AVENTIS-2013SA042085

PATIENT
  Age: 64 Year
  Sex: Male
  Weight: 69 kg

DRUGS (5)
  1. ALLEGRA [Suspect]
     Indication: PROPHYLAXIS
     Route: 048
     Dates: start: 20130108, end: 20130211
  2. IRBETAN [Concomitant]
     Dosage: STRENGTH: 100 MG
     Route: 048
  3. ATELEC [Concomitant]
     Dosage: STRENGTH: 10 MG
     Route: 048
  4. URINORM [Concomitant]
     Dosage: STRENGTH: 25 MG
     Route: 048
  5. BEZATOL - SLOW RELEASE [Concomitant]
     Dosage: STRENGTH: 200 MG
     Route: 048

REACTIONS (2)
  - Drug-induced liver injury [Recovering/Resolving]
  - Jaundice [Recovering/Resolving]
